FAERS Safety Report 5049682-4 (Version None)
Quarter: 2006Q3

REPORT INFORMATION
  Report Type: 
  Country: None (occurrence: None)
  Receive Date: 20060706
  Receipt Date: 20060626
  Transmission Date: 20061208
  Serious: Yes (Hospitalization)
  Sender: FDA-Public Use
  Company Number: 200610777BYL

PATIENT
  Age: 66 Year
  Sex: Male
  Weight: 56 kg

DRUGS (8)
  1. GLUCOBAY [Suspect]
     Indication: DIABETES MELLITUS
     Dosage: 50 MG, TID, ORAL
     Route: 048
     Dates: start: 20060404, end: 20060529
  2. ASPIRIN [Concomitant]
     Indication: ANGINA PECTORIS
     Dosage: 100 MG, QD, ORAL
     Route: 048
     Dates: start: 20060329, end: 20060529
  3. LASIX [Concomitant]
  4. FAMOTIDINE [Concomitant]
  5. DIBETOS B [Concomitant]
  6. TICLOPIDINE HCL [Concomitant]
  7. ARTIST [Concomitant]
  8. NU-LOTAN [Concomitant]

REACTIONS (1)
  - EOSINOPHILIA [None]
